FAERS Safety Report 9871812 (Version 2)
Quarter: 2014Q1

REPORT INFORMATION
  Report Type: Spontaneous
  Country: JP (occurrence: JP)
  Receive Date: 20140205
  Receipt Date: 20140205
  Transmission Date: 20141002
  Serious: Yes (Hospitalization)
  Sender: FDA-Public Use
  Company Number: JP-TAKEDA-0239544

PATIENT
  Age: 46 Year
  Sex: Male

DRUGS (7)
  1. TACHOSIL [Suspect]
     Indication: PROPHYLAXIS
     Dosage: 1SHEET OF REGULAR SIZE
     Route: 050
     Dates: start: 20130304
  2. MYSLEE [Concomitant]
     Indication: INSOMNIA
     Dosage: 5 MG, QD
     Dates: start: 20130320
  3. TSUMURA DAIKENCHUTO [Concomitant]
     Indication: PROPHYLAXIS
     Dosage: 2.5 G, TID
     Dates: start: 20130307
  4. CELECOX [Concomitant]
     Indication: PROPHYLAXIS
     Dosage: 200 MG, BID
     Route: 048
     Dates: start: 20130305
  5. RASENAZOLIN [Concomitant]
     Indication: PROPHYLAXIS
     Dosage: 19 G, BID
     Dates: start: 20130308
  6. RED CELLS MAP [Concomitant]
  7. PLASMA [Concomitant]

REACTIONS (3)
  - Suture related complication [Recovering/Resolving]
  - Wound infection [Recovered/Resolved]
  - Urticaria [Recovering/Resolving]
